FAERS Safety Report 13267439 (Version 1)
Quarter: 2017Q1

REPORT INFORMATION
  Report Type: Spontaneous
  Country: US (occurrence: US)
  Receive Date: 20170223
  Receipt Date: 20170223
  Transmission Date: 20170428
  Serious: No
  Sender: FDA-Public Use
  Company Number: None

PATIENT
  Sex: Female

DRUGS (1)
  1. NINLARO [Suspect]
     Active Substance: IXAZOMIB
     Indication: PLASMA CELL MYELOMA
     Dosage: QW  X 3 WEEKS, THEN 1 WEEK OFF
     Route: 048
     Dates: start: 20161203

REACTIONS (3)
  - Erythema [None]
  - Diarrhoea [None]
  - Paraesthesia [None]
